FAERS Safety Report 19479153 (Version 2)
Quarter: 2021Q3

REPORT INFORMATION
  Report Type: Report from Study
  Country: KR (occurrence: KR)
  Receive Date: 20210630
  Receipt Date: 20210810
  Transmission Date: 20211014
  Serious: Yes (Hospitalization)
  Sender: FDA-Public Use
  Company Number: KR-GILEAD-2019-0394491

PATIENT
  Sex: Male
  Weight: 66.7 kg

DRUGS (18)
  1. RIBAVIRIN. [Suspect]
     Active Substance: RIBAVIRIN
     Dosage: 1000 MG, BID
     Route: 048
     Dates: start: 20180110, end: 20180117
  2. TIROXIN [CEFROXADINE] [Concomitant]
     Active Substance: CEFROXADINE
     Indication: NEPHROLITHIASIS
     Dosage: UNK
     Dates: start: 20180124, end: 20180126
  3. SOFOSBUVIR [Suspect]
     Active Substance: SOFOSBUVIR
     Dosage: 400 MG, QD
     Route: 048
     Dates: start: 20180110, end: 20180117
  4. SOFOSBUVIR [Suspect]
     Active Substance: SOFOSBUVIR
     Dosage: 400 MG, QD
     Route: 048
     Dates: start: 20180214, end: 20180221
  5. RIBAVIRIN. [Suspect]
     Active Substance: RIBAVIRIN
     Dosage: 1000 MG, BID
     Route: 048
     Dates: start: 20180404, end: 20180418
  6. MVH [Concomitant]
     Active Substance: VITAMINS
     Indication: DIZZINESS
     Dosage: UNK
     Dates: start: 20180322, end: 20180322
  7. RIBAVIRIN. [Suspect]
     Active Substance: RIBAVIRIN
     Indication: CHRONIC HEPATITIS C
     Dosage: 1000 MG, BID
     Route: 048
     Dates: start: 20180110, end: 20180417
  8. ROWATINEX [ANETHOLE;BORNEOL;CAMPHENE;CINEOLE;FENCHONE;PINENE] [Concomitant]
     Indication: NEPHROLITHIASIS
     Dosage: UNK
     Dates: start: 20180124, end: 20180422
  9. OS?BETA [Concomitant]
     Active Substance: DICLOFENAC SODIUM
     Indication: NEPHROLITHIASIS
     Dosage: UNK
     Dates: start: 20180124, end: 20180124
  10. UROCITRA K [Concomitant]
     Indication: NEPHROLITHIASIS
     Dosage: UNK
     Dates: start: 20180124, end: 20180422
  11. MIDAZOLAM. [Concomitant]
     Active Substance: MIDAZOLAM
     Indication: NEPHROLITHIASIS
     Dosage: UNK
     Dates: start: 20180124, end: 20180124
  12. SOFOSBUVIR [Suspect]
     Active Substance: SOFOSBUVIR
     Indication: CHRONIC HEPATITIS C
     Dosage: 400 MG, QD
     Route: 048
     Dates: start: 20180110, end: 20180417
  13. GABET [Concomitant]
     Indication: NEPHROLITHIASIS
     Dosage: UNK
     Dates: start: 20180124, end: 20180126
  14. PELUBI [Concomitant]
     Indication: NEPHROLITHIASIS
     Dosage: UNK
     Dates: start: 20180124, end: 20180126
  15. SOFOSBUVIR [Suspect]
     Active Substance: SOFOSBUVIR
     Dosage: 400 MG, QD
     Route: 048
     Dates: start: 20180404, end: 20180418
  16. RIBAVIRIN. [Suspect]
     Active Substance: RIBAVIRIN
     Dosage: 1000 MG, BID
     Route: 048
     Dates: start: 20180214, end: 20180221
  17. NESOMICIN [Concomitant]
     Indication: NEPHROLITHIASIS
     Dosage: UNK
     Dates: start: 20180124, end: 20180124
  18. LIVERACT [Concomitant]
     Indication: CHRONIC HEPATITIS C
     Dosage: UNK
     Dates: start: 20180322, end: 20180322

REACTIONS (3)
  - Dyspepsia [Recovered/Resolved]
  - Constipation [Recovered/Resolved]
  - Dizziness [Recovered/Resolved]

NARRATIVE: CASE EVENT DATE: 20180221
